FAERS Safety Report 16745569 (Version 3)
Quarter: 2019Q3

REPORT INFORMATION
  Report Type: Spontaneous
  Country: US (occurrence: US)
  Receive Date: 20190827
  Receipt Date: 20190923
  Transmission Date: 20191005
  Serious: No
  Sender: FDA-Public Use
  Company Number: US-PFIZER INC-2019365346

PATIENT
  Age: 64 Year
  Sex: Female
  Weight: 75 kg

DRUGS (4)
  1. PRILOSEC [Concomitant]
     Active Substance: OMEPRAZOLE MAGNESIUM
     Indication: THROAT CANCER
     Dosage: 40 MG, AS NEEDED
     Dates: start: 2015
  2. FLECTOR [Suspect]
     Active Substance: DICLOFENAC EPOLAMINE
     Indication: TENDONITIS
     Dosage: UNK UNK, 2X/DAY (AAA (APPLY TO AFFECTED AREA) BID (TWICE A DAY))
     Route: 062
     Dates: start: 20190820, end: 20190821
  3. ASPIRIN [ACETYLSALICYLIC ACID] [Concomitant]
     Active Substance: ASPIRIN
     Indication: BLOOD PRESSURE INCREASED
     Dosage: 81 MG, UNK
  4. PRILOSEC [Concomitant]
     Active Substance: OMEPRAZOLE MAGNESIUM
     Indication: FLATULENCE

REACTIONS (16)
  - Back pain [Recovering/Resolving]
  - Flatulence [Recovering/Resolving]
  - Dyspepsia [Recovering/Resolving]
  - Feeling abnormal [Unknown]
  - Viral infection [Unknown]
  - Hypertension [Unknown]
  - Nausea [Recovering/Resolving]
  - Restlessness [Unknown]
  - Renal cyst [Unknown]
  - Drug intolerance [Unknown]
  - Vomiting [Unknown]
  - Blood pressure fluctuation [Not Recovered/Not Resolved]
  - Abdominal pain [Recovering/Resolving]
  - Headache [Recovering/Resolving]
  - Retching [Unknown]
  - Malaise [Unknown]

NARRATIVE: CASE EVENT DATE: 201908
